FAERS Safety Report 11180893 (Version 4)
Quarter: 2015Q3

REPORT INFORMATION
  Report Type: Spontaneous
  Country: US (occurrence: US)
  Receive Date: 20150611
  Receipt Date: 20150729
  Transmission Date: 20151125
  Serious: Yes (Hospitalization, Other)
  Sender: FDA-Public Use
  Company Number: US-GLAXOSMITHKLINE-US2015GSK072465

PATIENT
  Age: 60 Year
  Sex: Male
  Weight: 81.63 kg

DRUGS (17)
  1. COLCHICINE. [Concomitant]
     Active Substance: COLCHICINE
  2. ASPIRIN EC [Concomitant]
     Active Substance: ASPIRIN
  3. ALEVE [Concomitant]
     Active Substance: NAPROXEN SODIUM
  4. ONDANSETRON ODT [Concomitant]
     Active Substance: ONDANSETRON
  5. DEXAMETHASONE. [Concomitant]
     Active Substance: DEXAMETHASONE
  6. LORAZEPAM. [Concomitant]
     Active Substance: LORAZEPAM
  7. GENERLAC [Concomitant]
     Active Substance: LACTULOSE
  8. LYRICA [Concomitant]
     Active Substance: PREGABALIN
  9. MOTRIN IB [Concomitant]
     Active Substance: IBUPROFEN
  10. MEKINIST [Suspect]
     Active Substance: TRAMETINIB DIMETHYL SULFOXIDE
     Indication: BRAF GENE MUTATION
     Dosage: 2 MG, QD
     Route: 048
     Dates: start: 201507
  11. NABUMETONE. [Concomitant]
     Active Substance: NABUMETONE
  12. OXYCODONE HYDROCHLORIDE. [Concomitant]
     Active Substance: OXYCODONE HYDROCHLORIDE
  13. TAFINLAR [Suspect]
     Active Substance: DABRAFENIB MESYLATE
     Indication: BRAF GENE MUTATION
     Dosage: 150 MG, BID
     Route: 048
     Dates: start: 201507
  14. MEKINIST [Suspect]
     Active Substance: TRAMETINIB DIMETHYL SULFOXIDE
     Indication: METASTATIC MALIGNANT MELANOMA
     Dosage: 2 MG, QD
     Route: 048
     Dates: start: 20150330, end: 20150707
  15. LOTEMAX [Concomitant]
     Active Substance: LOTEPREDNOL ETABONATE
  16. CEPHALEXIN. [Concomitant]
     Active Substance: CEPHALEXIN
  17. TAFINLAR [Suspect]
     Active Substance: DABRAFENIB MESYLATE
     Indication: METASTATIC MALIGNANT MELANOMA
     Dosage: 150 MG, BID
     Route: 048
     Dates: start: 20150327, end: 20150707

REACTIONS (7)
  - Eating disorder [Recovering/Resolving]
  - Myocardial infarction [Unknown]
  - Dysgeusia [Recovering/Resolving]
  - Product taste abnormal [Unknown]
  - Skin odour abnormal [Recovering/Resolving]
  - Vomiting [Recovering/Resolving]
  - Nausea [Recovering/Resolving]

NARRATIVE: CASE EVENT DATE: 20150714
